FAERS Safety Report 5917744-2 (Version None)
Quarter: 2008Q4

REPORT INFORMATION
  Report Type: 
  Country: None (occurrence: None)
  Receive Date: 20081014
  Receipt Date: 20081007
  Transmission Date: 20090506
  Serious: Yes (Other)
  Sender: FDA-Public Use
  Company Number: US-BAYER-200813931BCC

PATIENT
  Age: 67 Year
  Sex: Female
  Weight: 78 kg

DRUGS (8)
  1. ALKA-SELTZER PLUS COLD EFFERVESCENT SPARKLING ORIGINAL TABLETS [Suspect]
     Indication: NASOPHARYNGITIS
     Dosage: TOTAL DAILY DOSE: 2 DF  UNIT DOSE: 1 DF
     Route: 048
     Dates: start: 20080928, end: 20080929
  2. INSULIN [Concomitant]
     Route: 058
  3. METFORMIN HCL [Concomitant]
  4. BLOOD PRESSURE MEDICATION [Concomitant]
  5. LIPITOR [Concomitant]
  6. ACCUPRIL [Concomitant]
  7. OMEPRAZOLE [Concomitant]
  8. LYRICA [Concomitant]

REACTIONS (1)
  - BLOOD GLUCOSE INCREASED [None]
